FAERS Safety Report 15970125 (Version 3)
Quarter: 2019Q2

REPORT INFORMATION
  Report Type: Report from Study
  Country: US (occurrence: US)
  Receive Date: 20190215
  Receipt Date: 20190613
  Transmission Date: 20190711
  Serious: Yes (Hospitalization)
  Sender: FDA-Public Use
  Company Number: PHEH2019US006827

PATIENT
  Sex: Female

DRUGS (1)
  1. GILENYA [Suspect]
     Active Substance: FINGOLIMOD HYDROCHLORIDE
     Indication: MULTIPLE SCLEROSIS
     Dosage: 0.5 MG, QD
     Route: 048

REACTIONS (11)
  - Hypoaesthesia [Unknown]
  - Nausea [Unknown]
  - Restless legs syndrome [Unknown]
  - Dizziness [Unknown]
  - Rectal haemorrhage [Unknown]
  - Gastritis [Unknown]
  - Spinal stenosis [Unknown]
  - Abdominal discomfort [Unknown]
  - Muscular weakness [Unknown]
  - Gastric ulcer [Unknown]
  - Feeling abnormal [Unknown]
